FAERS Safety Report 7291130-8 (Version None)
Quarter: 2011Q1

REPORT INFORMATION
  Report Type: 
  Country: None (occurrence: None)
  Receive Date: 20110214
  Receipt Date: 20110208
  Transmission Date: 20110831
  Serious: Yes (Other)
  Sender: FDA-Public Use
  Company Number: US-PFIZER INC-2011031204

PATIENT
  Sex: Male
  Weight: 58.957 kg

DRUGS (2)
  1. VIAGRA [Suspect]
     Indication: SEXUAL DYSFUNCTION
     Dosage: 100 MG, UNK
     Route: 048
     Dates: start: 20040101
  2. VIAGRA [Suspect]
     Dosage: 100 MG, UNK
     Route: 048

REACTIONS (5)
  - FEELING ABNORMAL [None]
  - DIABETES MELLITUS [None]
  - MEMORY IMPAIRMENT [None]
  - CONFUSIONAL STATE [None]
  - PALPITATIONS [None]
